FAERS Safety Report 5887070-9 (Version None)
Quarter: 2008Q3

REPORT INFORMATION
  Report Type: 
  Country: None (occurrence: None)
  Receive Date: 20080917
  Receipt Date: 20080902
  Transmission Date: 20090109
  Serious: Yes (Death, Life-Threatening)
  Sender: FDA-Public Use
  Company Number: US-GENENTECH-267814

PATIENT

DRUGS (2)
  1. BEVACIZUMAB [Suspect]
     Indication: HEAD AND NECK CANCER
     Dosage: 15 MG/KG, Q21D
  2. ERBITUX [Suspect]
     Indication: HEAD AND NECK CANCER
     Dosage: 250 MG/M2, Q21D
     Dates: start: 20070913, end: 20080109

REACTIONS (2)
  - DISEASE PROGRESSION [None]
  - RESPIRATORY FAILURE [None]
